FAERS Safety Report 14740827 (Version 5)
Quarter: 2018Q2

REPORT INFORMATION
  Report Type: Spontaneous
  Country: US (occurrence: US)
  Receive Date: 20180410
  Receipt Date: 20180511
  Transmission Date: 20180711
  Serious: Yes (Other)
  Sender: FDA-Public Use
  Company Number: US-GLAXOSMITHKLINE-US2018GSK054632

PATIENT
  Sex: Male

DRUGS (1)
  1. VENTOLIN HFA [Suspect]
     Active Substance: ALBUTEROL SULFATE
     Indication: PRODUCT USED FOR UNKNOWN INDICATION
     Dosage: 2 PUFF(S), EVERY 4 HOURS
     Route: 055

REACTIONS (6)
  - Drug ineffective [Unknown]
  - Influenza [Unknown]
  - Productive cough [Unknown]
  - Wrong technique in product usage process [Unknown]
  - Respiratory distress [Unknown]
  - Pneumonia [Unknown]
